FAERS Safety Report 4553836-0 (Version None)
Quarter: 2005Q1

REPORT INFORMATION
  Report Type: 
  Country: None (occurrence: None)
  Receive Date: 20050111
  Receipt Date: 20050111
  Transmission Date: 20050727
  Serious: Yes (Disabling)
  Sender: FDA-Public Use
  Company Number: None

PATIENT
  Age: 70 Year
  Sex: Male
  Weight: 96.6162 kg

DRUGS (5)
  1. AVASTIN [Suspect]
     Indication: COLON CANCER METASTATIC
     Dosage: 840MG (10 MG/KG) IV EVERY 2 WEEKS
     Route: 042
     Dates: start: 20040601
  2. PAXIL [Concomitant]
  3. NORVASC [Concomitant]
  4. THIAMINE [Concomitant]
  5. IRON [Concomitant]

REACTIONS (1)
  - RECTAL ULCER [None]
